FAERS Safety Report 22249781 (Version 1)
Quarter: 2023Q2

REPORT INFORMATION
  Report Type: Spontaneous
  Country: US (occurrence: None)
  Receive Date: 20230421
  Receipt Date: 20230421
  Transmission Date: 20230721
  Serious: Yes (Death)
  Sender: FDA-Public Use
  Company Number: None

PATIENT
  Sex: Female

DRUGS (10)
  1. TADALAFIL [Suspect]
     Active Substance: TADALAFIL
     Indication: Pulmonary arterial hypertension
     Route: 048
     Dates: start: 20200430
  2. ALTACE CAP [Concomitant]
  3. ENREL INJ [Concomitant]
  4. ENBREL [Concomitant]
     Active Substance: ETANERCEPT
  5. ENBREL SRCLK INJ [Concomitant]
  6. FUROSEMIDE TAB [Concomitant]
  7. HYDROCHLOROT TAB [Concomitant]
  8. LIPITOR TAB [Concomitant]
  9. SYNTHROID TAB [Concomitant]
  10. TRACLEER TAB [Concomitant]

REACTIONS (1)
  - Death [None]
